FAERS Safety Report 9540598 (Version 1)
Quarter: 2013Q3

REPORT INFORMATION
  Report Type: Spontaneous
  Country: US (occurrence: US)
  Receive Date: 20130920
  Receipt Date: 20130920
  Transmission Date: 20140515
  Serious: No
  Sender: FDA-Public Use
  Company Number: US-PFIZER INC-2013270359

PATIENT
  Age: 58 Year
  Sex: Female
  Weight: 61.2 kg

DRUGS (7)
  1. CHANTIX [Suspect]
     Indication: SMOKING CESSATION THERAPY
     Dosage: 0.5 MG, DAILY FOR 3 DAYS
     Dates: start: 2012, end: 2012
  2. CHANTIX [Suspect]
     Dosage: 0.5 MG, 2X/DAY FOR 4 DAYS
     Dates: start: 2012, end: 2012
  3. CHANTIX [Suspect]
     Dosage: 1 MG, 2X/DAY
     Dates: start: 2012, end: 2012
  4. SYMBICORT [Concomitant]
     Indication: ASTHMA
     Dosage: UNK
  5. ATROVENT [Concomitant]
     Indication: ASTHMA
     Dosage: UNK
  6. ALBUTEROL SULFATE [Concomitant]
     Indication: ASTHMA
     Dosage: UNK
  7. SIMVASTATIN [Concomitant]
     Indication: BLOOD CHOLESTEROL ABNORMAL
     Dosage: 20 MG, 1X/DAY
     Dates: start: 2010

REACTIONS (1)
  - Dyspepsia [Recovered/Resolved]
